FAERS Safety Report 9859672 (Version 6)
Quarter: 2015Q4

REPORT INFORMATION
  Report Type: Spontaneous
  Country: US (occurrence: US)
  Receive Date: 20140131
  Receipt Date: 20151118
  Transmission Date: 20160305
  Serious: Yes (Hospitalization, Other)
  Sender: FDA-Public Use
  Company Number: US-GLAXOSMITHKLINE-A1058713A

PATIENT
  Age: 39 Year
  Sex: Male
  Weight: 70 kg

DRUGS (5)
  1. FLOLAN [Suspect]
     Active Substance: EPOPROSTENOL SODIUM
     Indication: NEONATAL DISORDER
     Dosage: 9 NG/KG/MIN, 10,000 NG/ML, 86 ML/DAY
     Route: 042
     Dates: start: 20010613
  2. FLOLAN [Suspect]
     Active Substance: EPOPROSTENOL SODIUM
     Indication: PULMONARY HYPERTENSION
     Dosage: UNK, CO
     Dates: start: 20010713
  3. COUMADIN [Concomitant]
     Active Substance: WARFARIN SODIUM
  4. FLOLAN [Suspect]
     Active Substance: EPOPROSTENOL SODIUM
     Indication: CHRONIC RESPIRATORY DISEASE
     Dosage: 9 DF, CO
     Route: 042
  5. REVATIO [Concomitant]
     Active Substance: SILDENAFIL CITRATE

REACTIONS (8)
  - Device related infection [Unknown]
  - Central venous catheterisation [Unknown]
  - Bronchitis [Recovered/Resolved]
  - Medical device complication [Recovered/Resolved]
  - Fluid retention [Recovered/Resolved]
  - Dyspnoea [Recovered/Resolved]
  - H1N1 influenza [Recovered/Resolved]
  - Pulmonary oedema [Unknown]

NARRATIVE: CASE EVENT DATE: 20140105
